FAERS Safety Report 12373653 (Version 1)
Quarter: 2016Q2

REPORT INFORMATION
  Report Type: Report from Study
  Country: US (occurrence: US)
  Receive Date: 20160516
  Receipt Date: 20160516
  Transmission Date: 20160815
  Serious: No
  Sender: FDA-Public Use
  Company Number: US-MALLINCKRODT-T201502342

PATIENT
  Sex: Female

DRUGS (1)
  1. REPOSITORY CORTICOTROPIN INJECTION [Suspect]
     Active Substance: CORTICOTROPIN
     Indication: FOCAL SEGMENTAL GLOMERULOSCLEROSIS
     Dosage: 80 UNITS TWICE WEEKLY
     Route: 058
     Dates: start: 20150413, end: 20150601

REACTIONS (8)
  - Blister [Unknown]
  - Oedema [Unknown]
  - Blood albumin decreased [Unknown]
  - Fluid retention [Unknown]
  - Flushing [Unknown]
  - Gait disturbance [Unknown]
  - Anxiety [Unknown]
  - Erythema [Unknown]
